FAERS Safety Report 21628345 (Version 4)
Quarter: 2023Q1

REPORT INFORMATION
  Report Type: Spontaneous
  Country: US (occurrence: US)
  Receive Date: 20221122
  Receipt Date: 20230117
  Transmission Date: 20230417
  Serious: No
  Sender: FDA-Public Use
  Company Number: US-PFIZER INC-202201309574

PATIENT
  Age: 73 Year
  Sex: Female
  Weight: 60.78 kg

DRUGS (1)
  1. ESTRING [Suspect]
     Active Substance: ESTRADIOL
     Indication: Menopause
     Dosage: UNK, EVERY 3 MONTHS (INSERTED VAGINALLY EVERY THREE MONTHS)
     Route: 067
     Dates: start: 2022

REACTIONS (2)
  - Device difficult to use [Unknown]
  - Wrong technique in device usage process [Unknown]
